FAERS Safety Report 5901700-4 (Version None)
Quarter: 2008Q3

REPORT INFORMATION
  Report Type: 
  Country: None (occurrence: None)
  Receive Date: 20080929
  Receipt Date: 20080926
  Transmission Date: 20090109
  Serious: Yes (Death)
  Sender: FDA-Public Use
  Company Number: A0749646A

PATIENT
  Age: 75 Year
  Sex: Female
  Weight: 68 kg

DRUGS (3)
  1. SERETIDE [Suspect]
     Indication: ASTHMA
     Route: 055
     Dates: start: 20070901, end: 20080806
  2. DIGOXIN [Concomitant]
     Dates: start: 20040101, end: 20080806
  3. ENALAPRIL MALEATE [Concomitant]
     Dates: start: 20040101, end: 20080806

REACTIONS (1)
  - CEREBROVASCULAR ACCIDENT [None]
